FAERS Safety Report 20124858 (Version 7)
Quarter: 2022Q1

REPORT INFORMATION
  Report Type: Report from Study
  Country: ES (occurrence: ES)
  Receive Date: 20211129
  Receipt Date: 20220131
  Transmission Date: 20220423
  Serious: Yes (Death, Hospitalization, Other)
  Sender: FDA-Public Use
  Company Number: ES-ABBVIE-21K-144-4153977-00

PATIENT
  Sex: Female

DRUGS (3)
  1. CARBIDOPA\LEVODOPA [Suspect]
     Active Substance: CARBIDOPA\LEVODOPA
     Indication: Parkinson^s disease
     Dosage: 16H A DAY
     Route: 050
     Dates: start: 20201217
  2. CARBIDOPA\LEVODOPA [Suspect]
     Active Substance: CARBIDOPA\LEVODOPA
  3. CANDESARTAN CILEXETIL [Suspect]
     Active Substance: CANDESARTAN CILEXETIL
     Indication: Orthostatic hypotension
     Dosage: ONE PILL IN THE MORNING
     Route: 065
     Dates: start: 20211118

REACTIONS (21)
  - Cardiac arrest [Fatal]
  - Epilepsy [Recovering/Resolving]
  - Swollen tongue [Recovered/Resolved]
  - Speech disorder [Recovered/Resolved]
  - Agitation [Unknown]
  - Pain in extremity [Not Recovered/Not Resolved]
  - Head injury [Not Recovered/Not Resolved]
  - Hypophagia [Unknown]
  - Tachycardia [Not Recovered/Not Resolved]
  - Tension [Unknown]
  - Tremor [Unknown]
  - Fall [Recovered/Resolved]
  - Dizziness [Unknown]
  - Hypertension [Not Recovered/Not Resolved]
  - Vomiting [Not Recovered/Not Resolved]
  - Abdominal pain upper [Not Recovered/Not Resolved]
  - Orthostatic hypotension [Unknown]
  - Therapeutic product effect incomplete [Unknown]
  - Unevaluable event [Unknown]
  - Nausea [Not Recovered/Not Resolved]
  - On and off phenomenon [Not Recovered/Not Resolved]

NARRATIVE: CASE EVENT DATE: 20210101
